FAERS Safety Report 7144979-6 (Version None)
Quarter: 2010Q4

REPORT INFORMATION
  Report Type: 
  Country: None (occurrence: None)
  Receive Date: 20101208
  Receipt Date: 20101130
  Transmission Date: 20110411
  Serious: Yes (Other)
  Sender: FDA-Public Use
  Company Number: DE-JNJFOC-20101000892

PATIENT
  Sex: Female
  Weight: 78 kg

DRUGS (8)
  1. RISPERDAL CONSTA [Suspect]
     Indication: SCHIZOPHRENIA, PARANOID TYPE
     Route: 030
  2. RISPERDAL CONSTA [Suspect]
     Route: 030
  3. RISPERDAL CONSTA [Suspect]
     Route: 030
  4. RISPERDAL CONSTA [Suspect]
     Route: 030
  5. CITALOPRAM HYDROBROMIDE [Concomitant]
     Route: 048
     Dates: start: 20070101
  6. RISPERDAL [Concomitant]
     Dosage: 1-2 MG
     Route: 048
  7. DELIX PLUS [Concomitant]
     Route: 048
  8. ASPIRIN [Concomitant]
     Route: 048

REACTIONS (5)
  - AGGRESSION [None]
  - DRUG TOXICITY [None]
  - HALLUCINATION [None]
  - OVERDOSE [None]
  - THERAPEUTIC RESPONSE DECREASED [None]
